FAERS Safety Report 8469215 (Version 4)
Quarter: 2013Q4

REPORT INFORMATION
  Report Type: Spontaneous
  Country: JP (occurrence: JP)
  Receive Date: 20120321
  Receipt Date: 20131119
  Transmission Date: 20140711
  Serious: Yes (Other)
  Sender: FDA-Public Use
  Company Number: JP-JNJFOC-20120307390

PATIENT
  Age: 16 Year
  Sex: Female

DRUGS (1)
  1. REMICADE [Suspect]
     Indication: CROHN^S DISEASE
     Route: 042

REACTIONS (6)
  - Abscess neck [Unknown]
  - Fungal sepsis [Unknown]
  - Genital abscess [Unknown]
  - Device related infection [Unknown]
  - Vaginal abscess [Unknown]
  - Vulval abscess [Unknown]
